FAERS Safety Report 18176417 (Version 1)
Quarter: 2020Q3

REPORT INFORMATION
  Report Type: Report from Study
  Country: GB (occurrence: GB)
  Receive Date: 20200820
  Receipt Date: 20200820
  Transmission Date: 20201103
  Serious: Yes (Death, Other)
  Sender: FDA-Public Use
  Company Number: GB-CASPER PHARMA LLC-2020CAS000366

PATIENT
  Age: 35 Year
  Sex: Male

DRUGS (2)
  1. AZATHIOPRINE. [Suspect]
     Active Substance: AZATHIOPRINE
     Indication: RENAL TRANSPLANT
     Dosage: 100 MILLIGRAM, QD
     Route: 065
     Dates: start: 197709
  2. PREDNISOLONE. [Concomitant]
     Active Substance: PREDNISOLONE
     Indication: RENAL TRANSPLANT
     Dosage: 40 MILLIGRAM, ON ALTERNATE DAYS
     Route: 065
     Dates: start: 197709

REACTIONS (3)
  - Portal hypertension [Fatal]
  - Peliosis hepatis [Fatal]
  - Nodular regenerative hyperplasia [Fatal]
